FAERS Safety Report 6638096-9 (Version None)
Quarter: 2010Q1

REPORT INFORMATION
  Report Type: 
  Country: None (occurrence: None)
  Receive Date: 20100317
  Receipt Date: 20100311
  Transmission Date: 20100710
  Serious: Yes (Hospitalization, Disabling, Other)
  Sender: FDA-Public Use
  Company Number: IT-ROXANE LABORATORIES, INC.-2010-RO-00254RO

PATIENT
  Age: 46 Year
  Sex: Female

DRUGS (11)
  1. MORPHINE [Suspect]
     Indication: CANCER PAIN
     Dosage: 1.5 MG
     Route: 037
  2. MORPHINE [Suspect]
     Dosage: 10 MG
     Route: 037
  3. METHADONE [Suspect]
     Indication: CANCER PAIN
     Dosage: 12 MG
     Route: 042
  4. METHADONE [Suspect]
     Dosage: 30 MG
     Route: 042
  5. BUPRENORPHINE HYDROCHLORIDE [Suspect]
     Indication: HYDRONEPHROSIS
     Route: 062
  6. GRANISETRON [Suspect]
     Indication: SUPPORTIVE CARE
     Route: 042
  7. FUROSEMIDE [Suspect]
     Indication: SUPPORTIVE CARE
     Route: 042
  8. FENTANYL [Suspect]
     Indication: BREAKTHROUGH PAIN
     Route: 048
  9. FENTANYL [Suspect]
     Route: 048
  10. FENTANYL [Suspect]
     Route: 062
  11. BUPIVACAINE HCL [Suspect]
     Indication: CANCER PAIN
     Dosage: 25 MG
     Route: 037

REACTIONS (10)
  - ANAEMIA [None]
  - BREAKTHROUGH PAIN [None]
  - CONSTIPATION [None]
  - DISEASE PROGRESSION [None]
  - DRUG INEFFECTIVE [None]
  - MOTOR DYSFUNCTION [None]
  - NARCOTIC INTOXICATION [None]
  - NAUSEA [None]
  - QUADRIPLEGIA [None]
  - VOMITING [None]
